FAERS Safety Report 4464729-1 (Version None)
Quarter: 2004Q3

REPORT INFORMATION
  Report Type: 
  Country: None (occurrence: None)
  Receive Date: 20040929
  Receipt Date: 20040929
  Transmission Date: 20050211
  Serious: Yes (Hospitalization)
  Sender: FDA-Public Use
  Company Number: None

PATIENT
  Age: 54 Year
  Sex: Male
  Weight: 62.3 kg

DRUGS (16)
  1. DIGOXIN [Suspect]
     Indication: BLOOD PRESSURE
     Dosage: 0.25 MG DAILY ORAL
     Route: 048
     Dates: start: 20040427, end: 20040607
  2. DIGOXIN [Suspect]
     Indication: CARDIAC DISORDER
     Dosage: 0.25 MG DAILY ORAL
     Route: 048
     Dates: start: 20040427, end: 20040607
  3. ALBUTEROL/IPRATROPIUM [Concomitant]
  4. ASPIRIN [Concomitant]
  5. BISACODYL [Concomitant]
  6. CEPHALEXIN [Concomitant]
  7. ENALAPRIL [Concomitant]
  8. FUROSEMIDE [Concomitant]
  9. LACTULOSE [Concomitant]
  10. LEVOTHYROXINE SODIUM [Concomitant]
  11. MIRTAZAPINE [Concomitant]
  12. MORPHINE SULFATE [Concomitant]
  13. MYLANTA/BENADRYL/XYLOCAINE/ [Concomitant]
  14. OMEPRAZOLE [Concomitant]
  15. SALIVA [Concomitant]
  16. SPIRONOLACTONE [Concomitant]

REACTIONS (6)
  - CONFUSIONAL STATE [None]
  - HYPOKALAEMIA [None]
  - HYPOMAGNESAEMIA [None]
  - NAUSEA [None]
  - THERAPEUTIC AGENT TOXICITY [None]
  - VOMITING [None]
